FAERS Safety Report 11345903 (Version 1)
Quarter: 2015Q3

REPORT INFORMATION
  Report Type: Spontaneous
  Country: US (occurrence: US)
  Receive Date: 20150803
  Receipt Date: 20150803
  Transmission Date: 20151125
  Serious: No
  Sender: FDA-Public Use
  Company Number: US-ELI_LILLY_AND_COMPANY-US200909000788

PATIENT
  Age: 30 Year
  Sex: Female

DRUGS (2)
  1. STRATTERA [Suspect]
     Active Substance: ATOMOXETINE HYDROCHLORIDE
     Dosage: 40 MG, UNKNOWN
     Route: 065
  2. STRATTERA [Suspect]
     Active Substance: ATOMOXETINE HYDROCHLORIDE
     Dosage: 18 MG, UNKNOWN
     Route: 065

REACTIONS (9)
  - Hot flush [Unknown]
  - Cold sweat [Unknown]
  - Dry mouth [Unknown]
  - Flushing [Unknown]
  - Irritability [Unknown]
  - Restlessness [Unknown]
  - Feeling abnormal [Unknown]
  - Nausea [Unknown]
  - Pallor [Unknown]
